FAERS Safety Report 4634798-4 (Version None)
Quarter: 2005Q2

REPORT INFORMATION
  Report Type: 
  Country: None (occurrence: None)
  Receive Date: 20050412
  Receipt Date: 20050412
  Transmission Date: 20051028
  Serious: Yes (Hospitalization)
  Sender: FDA-Public Use
  Company Number: None

PATIENT
  Age: 87 Year
  Sex: Male
  Weight: 61.2356 kg

DRUGS (1)
  1. FINASTERIDE [Suspect]
     Indication: BENIGN PROSTATIC HYPERPLASIA
     Dosage: 5MG  Q DAY  ORAL
     Route: 048
     Dates: start: 20050322, end: 20050401

REACTIONS (2)
  - ANGIONEUROTIC OEDEMA [None]
  - FACE OEDEMA [None]
